FAERS Safety Report 25567489 (Version 1)
Quarter: 2025Q3

REPORT INFORMATION
  Report Type: Spontaneous
  Country: AU (occurrence: AU)
  Receive Date: 20250716
  Receipt Date: 20250716
  Transmission Date: 20251020
  Serious: Yes (Death, Hospitalization, Other)
  Sender: GE HEALTHCARE
  Company Number: AU-GE HEALTHCARE-2025CSU009245

PATIENT
  Age: 68 Year
  Sex: Male

DRUGS (1)
  1. OMNIPAQUE [Suspect]
     Active Substance: IOHEXOL
     Indication: Diagnostic procedure
     Route: 065

REACTIONS (10)
  - Brain stem haemorrhage [Fatal]
  - Cerebral haemorrhage [Fatal]
  - Hydrocephalus [Fatal]
  - Contrast encephalopathy [Fatal]
  - Hemiparesis [Fatal]
  - Respiratory arrest [Fatal]
  - Coma scale abnormal [Fatal]
  - Aspiration [Unknown]
  - Seizure [Unknown]
  - Tachypnoea [Unknown]

NARRATIVE: CASE EVENT DATE: 20250331
